FAERS Safety Report 5487968-X (Version None)
Quarter: 2007Q4

REPORT INFORMATION
  Report Type: 
  Country: None (occurrence: None)
  Receive Date: 20071012
  Receipt Date: 20071012
  Transmission Date: 20080405
  Serious: Yes (Hospitalization)
  Sender: FDA-Public Use
  Company Number: None

PATIENT
  Age: 73 Year
  Sex: Female
  Weight: 66.7 kg

DRUGS (9)
  1. METFORMIN HCL [Suspect]
     Indication: TYPE 2 DIABETES MELLITUS
     Dosage: 1000MG BID PO
     Route: 048
     Dates: start: 20070915, end: 20070919
  2. ONDANSETRON [Concomitant]
  3. SIMETHICONE [Concomitant]
  4. MEPIRIDINE [Concomitant]
  5. MIDANOLAM [Concomitant]
  6. SODIUM CHLORIDE [Concomitant]
  7. NOVOLOG [Concomitant]
  8. IRBESATRAN [Concomitant]
  9. PRAVASTATIN [Concomitant]

REACTIONS (4)
  - DIABETES MELLITUS INADEQUATE CONTROL [None]
  - DIABETIC KETOACIDOSIS [None]
  - LOWER GASTROINTESTINAL HAEMORRHAGE [None]
  - RENAL IMPAIRMENT [None]
